FAERS Safety Report 4597386-4 (Version None)
Quarter: 2005Q1

REPORT INFORMATION
  Report Type: 
  Country: None (occurrence: None)
  Receive Date: 20050303
  Receipt Date: 20041109
  Transmission Date: 20050727
  Serious: Yes (Other)
  Sender: FDA-Public Use
  Company Number: US-GLAXOSMITHKLINE-A0533238A

PATIENT
  Age: 84 Year
  Sex: Female

DRUGS (9)
  1. REQUIP [Suspect]
     Indication: PARKINSON'S DISEASE
     Route: 048
  2. LEVODOPA [Concomitant]
  3. HYDREA [Concomitant]
  4. ACIPHEX [Concomitant]
  5. TOPROL-XL [Concomitant]
  6. THYROID TAB [Concomitant]
  7. LANOXIN [Concomitant]
  8. TESSALON [Concomitant]
  9. SINGULAIR [Concomitant]

REACTIONS (6)
  - ASPARTATE AMINOTRANSFERASE INCREASED [None]
  - BLOOD ALKALINE PHOSPHATASE INCREASED [None]
  - BLOOD BILIRUBIN INCREASED [None]
  - BLOOD LACTATE DEHYDROGENASE INCREASED [None]
  - LIVER FUNCTION TEST ABNORMAL [None]
  - MEDICATION ERROR [None]
